FAERS Safety Report 7633488-3 (Version None)
Quarter: 2011Q3

REPORT INFORMATION
  Report Type: 
  Country: None (occurrence: None)
  Receive Date: 20110725
  Receipt Date: 20110425
  Transmission Date: 20111222
  Serious: Yes (Other)
  Sender: FDA-Public Use
  Company Number: US-BRISTOL-MYERS SQUIBB COMPANY-15708431

PATIENT

DRUGS (1)
  1. SPRYCEL [Suspect]
     Dosage: STARTED APPROXIMATELY 5 YEARS AGO

REACTIONS (2)
  - PLEURAL EFFUSION [None]
  - PULMONARY ARTERIAL HYPERTENSION [None]
